FAERS Safety Report 7045969-4 (Version None)
Quarter: 2010Q4

REPORT INFORMATION
  Report Type: 
  Country: None (occurrence: None)
  Receive Date: 20101014
  Receipt Date: 20101002
  Transmission Date: 20110411
  Serious: Yes (Other)
  Sender: FDA-Public Use
  Company Number: US-PFIZER INC-2010125696

PATIENT
  Sex: Female
  Weight: 98 kg

DRUGS (26)
  1. CHANTIX [Suspect]
     Indication: SMOKING CESSATION THERAPY
     Dosage: 0.5 MG, DAILY
     Route: 048
     Dates: start: 20100924
  2. AMBIEN [Concomitant]
     Dosage: 50 MG, DAILY
  3. ALVESCO [Concomitant]
     Dosage: 160 UG, 2X/DAY
  4. ARIXTRA [Concomitant]
     Dosage: 7.5 MG, DAILY
     Route: 058
  5. ACETYLSALICYLIC ACID [Concomitant]
     Dosage: 81 MG, DAILY
  6. VITAMIN B-12 [Concomitant]
     Dosage: UNK
  7. COMBIVENT [Concomitant]
     Dosage: UNK, 4X/DAY
  8. COREG [Concomitant]
     Dosage: 6.25 MG, 2X/DAY
  9. VITAMIN D [Concomitant]
     Dosage: 4000 IU, DAILY
  10. PERCOCET [Concomitant]
     Indication: SURGERY
     Dosage: 7.5/325 MG, 4X/DAY
  11. IRON [Concomitant]
     Dosage: 325 MG, 2X/DAY
  12. TAMSULOSIN HYDROCHLORIDE [Concomitant]
     Dosage: 0.4 MG, DAILY
  13. FOLIC ACID [Concomitant]
     Dosage: 1 MG, DAILY
  14. GABAPENTIN [Concomitant]
     Indication: SCIATICA
     Dosage: 300 MG, AS NEEDED
  15. FUROSEMIDE [Concomitant]
     Dosage: 40 MG, 2X/DAY
  16. INSULIN [Concomitant]
     Indication: SHOCK
     Dosage: UNK
  17. NEXIUM [Concomitant]
     Dosage: 40 MG, 2X/DAY
  18. MEXILETINE [Concomitant]
     Indication: HEART RATE IRREGULAR
     Dosage: 200 MG, 3X/DAY
  19. NITROGLYCERIN [Concomitant]
     Indication: HEART RATE IRREGULAR
     Dosage: UNK, AS NEEDED
  20. WARFARIN [Concomitant]
     Dosage: 12 MG, UNK
  21. TOPAMAX [Concomitant]
     Dosage: 50 MG, 2X/DAY
  22. POTASSIUM [Concomitant]
     Dosage: 80 MG, 4X/DAY
  23. PROMETHAZINE [Concomitant]
     Dosage: 25 MG, 3X/DAY
  24. PLAVIX [Concomitant]
     Dosage: 75 MG, UNK
  25. ALBUTEROL [Concomitant]
     Dosage: 3 MG, UNK
  26. IPRATROPIUM [Concomitant]
     Dosage: 0.5 MG, UNK

REACTIONS (2)
  - BLOOD PRESSURE INCREASED [None]
  - HEART RATE INCREASED [None]
